FAERS Safety Report 19489448 (Version 1)
Quarter: 2021Q3

REPORT INFORMATION
  Report Type: Spontaneous
  Country: DE (occurrence: DE)
  Receive Date: 20210703
  Receipt Date: 20210703
  Transmission Date: 20211014
  Serious: Yes (Hospitalization)
  Sender: FDA-Public Use
  Company Number: DE-TEVA-2021-DE-1928344

PATIENT
  Age: 78 Year
  Sex: Male
  Weight: 88.4 kg

DRUGS (15)
  1. PACLITAXEL. [Suspect]
     Active Substance: PACLITAXEL
     Dosage: ACCORDING TO THE SCHEME, INJECTION / INFUSION SOLUTION
     Route: 042
  2. GLYCOPYRRONIUMBROMID/INDACATEROL [Concomitant]
     Dosage: 1 DOSAGE FORMS DAILY; 85 | 43 UG, 1?0?0?0, METERED DOSE INHALER
     Route: 055
  3. COLECALCIFEROL (VITAMIN D) [Concomitant]
     Active Substance: CHOLECALCIFEROL
     Dosage: 20,000 IU
     Route: 048
  4. PANTOPRAZOL [Concomitant]
     Active Substance: PANTOPRAZOLE SODIUM
     Dosage: 40 MILLIGRAM DAILY; 1?0?0?0
     Route: 048
  5. NALOXON/TILIDIN [Concomitant]
     Active Substance: NALOXONE HYDROCHLORIDE\TILIDINE HYDROCHLORIDE
     Dosage: 2 DOSAGE FORMS DAILY; 8|100 MG, 1?0?1?0,
     Route: 048
  6. GEMCITABINE. [Suspect]
     Active Substance: GEMCITABINE
     Dosage: ACCORDING TO THE SCHEME, INJECTION / INFUSION SOLUTION
     Route: 042
  7. METOPROLOL. [Concomitant]
     Active Substance: METOPROLOL
     Dosage: 47.5 MILLIGRAM DAILY;  1?0?1?0
     Route: 048
  8. INSULIN LISPRO [Suspect]
     Active Substance: INSULIN LISPRO
     Dosage: ACCORDING TO THE SCHEME, INJECTION / INFUSION SOLUTION
     Route: 058
  9. METAMIZOL [Concomitant]
     Active Substance: METAMIZOLE SODIUM
     Dosage: 4 GRAM DAILY; 1?1?1?1
     Route: 048
  10. TINZAPARIN [Concomitant]
     Active Substance: TINZAPARIN
     Dosage: 1 DOSAGE FORMS DAILY; 14000 | 0.7 IU / ML, 1?0?0?0, SOLUTION FOR INJECTION / INFUSION
     Route: 058
  11. INSULIN GLARGIN [Suspect]
     Active Substance: INSULIN GLARGINE
     Dosage: 24 IU (INTERNATIONAL UNIT) DAILY; 0?0?0?1, SOLUTION FOR INJECTION / INFUSION
     Route: 058
  12. PANKREAS?PULVER VOM SCHWEIN [Concomitant]
     Dosage: 75000 IU (INTERNATIONAL UNIT) DAILY; 1?1?1?0
     Route: 048
  13. ALLOPURINOL. [Concomitant]
     Active Substance: ALLOPURINOL
     Dosage: .5 DOSAGE FORMS DAILY; 300 MG, 0.5?0?0?0
     Route: 048
  14. TORASEMID [Concomitant]
     Active Substance: TORSEMIDE
     Dosage: 40 MILLIGRAM DAILY; 1?0?0?0
     Route: 048
  15. CETIRIZIN [Concomitant]
     Active Substance: CETIRIZINE HYDROCHLORIDE
     Dosage: 10 MG, IF NECESSARY
     Route: 048

REACTIONS (5)
  - Diarrhoea [Unknown]
  - Fatigue [Unknown]
  - General physical health deterioration [Unknown]
  - Night sweats [Unknown]
  - Medication error [Unknown]
